FAERS Safety Report 12287543 (Version 1)
Quarter: 2016Q2

REPORT INFORMATION
  Report Type: Spontaneous
  Country: US (occurrence: US)
  Receive Date: 20160420
  Receipt Date: 20160420
  Transmission Date: 20160815
  Serious: Yes (Life-Threatening, Other)
  Sender: FDA-Public Use
  Company Number: US-BION-20160030

PATIENT
  Age: 24 Year
  Sex: Male

DRUGS (2)
  1. LOPRAMIDE UNKNOWN [Suspect]
     Active Substance: LOPERAMIDE
     Indication: DRUG ABUSE
     Dosage: UPTO 400 MG OF LOPERAMIDE DAILY
     Route: 048
  2. CIMETIDINE [Interacting]
     Active Substance: CIMETIDINE
     Indication: DRUG ABUSE

REACTIONS (3)
  - Arrhythmia [Recovered/Resolved]
  - Ventricular tachycardia [Recovered/Resolved]
  - Intentional product misuse [Recovered/Resolved]
